FAERS Safety Report 17491432 (Version 3)
Quarter: 2020Q1

REPORT INFORMATION
  Report Type: Report from Study
  Country: KR (occurrence: KR)
  Receive Date: 20200304
  Receipt Date: 20200324
  Transmission Date: 20200409
  Serious: Yes (Hospitalization)
  Sender: FDA-Public Use
  Company Number: KR-ROCHE-2558838

PATIENT
  Age: 69 Year
  Sex: Female
  Weight: 75.7 kg

DRUGS (46)
  1. TRAJENTA DUO [Concomitant]
     Active Substance: LINAGLIPTIN\METFORMIN HYDROCHLORIDE
     Indication: DIABETES MELLITUS
     Route: 048
     Dates: start: 2007
  2. DEXIMA [Concomitant]
     Route: 048
     Dates: start: 20200214
  3. RYZODEG 70/30 [Concomitant]
     Active Substance: INSULIN ASPART\INSULIN DEGLUDEC
     Indication: DIABETES MELLITUS
     Dosage: 30 UNIT
     Route: 058
     Dates: start: 202001
  4. PENIRAMIN [Concomitant]
     Indication: ANAPHYLACTIC REACTION
     Route: 042
     Dates: start: 20200123, end: 20200123
  5. TRIAXONE [Concomitant]
     Indication: INFECTION
     Route: 042
     Dates: start: 20200206, end: 20200212
  6. PLASMA SOLUTION A [Concomitant]
     Indication: HYPOTENSION
     Route: 042
     Dates: start: 20200206, end: 20200206
  7. PACETA [Concomitant]
     Indication: PYREXIA
     Route: 042
     Dates: start: 20200206, end: 20200209
  8. SMECTA [Concomitant]
     Active Substance: MONTMORILLONITE
     Indication: DIARRHOEA
     Route: 048
     Dates: start: 20200208
  9. TRAJENTA DUO [Concomitant]
     Active Substance: LINAGLIPTIN\METFORMIN HYDROCHLORIDE
     Route: 048
     Dates: start: 20200214
  10. DEXIMA [Concomitant]
     Indication: DIABETES MELLITUS
     Route: 048
     Dates: start: 2007, end: 20200206
  11. LASIX [Concomitant]
     Active Substance: FUROSEMIDE
     Indication: NEPHROPATHY TOXIC
     Route: 042
     Dates: start: 20200114, end: 20200114
  12. PENIRAMIN [Concomitant]
     Route: 042
     Dates: start: 20200130, end: 20200130
  13. LASIX [Concomitant]
     Active Substance: FUROSEMIDE
     Indication: OEDEMA
     Route: 048
     Dates: start: 20200208
  14. CAL-D [Concomitant]
     Indication: HYPOCALCAEMIA
     Route: 048
     Dates: start: 20200208, end: 20200210
  15. HU5F9 G4 [Suspect]
     Active Substance: MAGROLIMAB
     Indication: TRANSITIONAL CELL CARCINOMA
     Dosage: DATE OF MOST RECENT DOSE (2226 MG/KG) OF HU5F9-G4 PRIOR TO EVENT ONSET 30/JAN/2020
     Route: 042
     Dates: start: 20200123
  16. OMEGA 3 ACID ETHYL ESTERS [Concomitant]
     Active Substance: OMEGA-3-ACID ETHYL ESTERS
     Indication: HYPERCHOLESTEROLAEMIA
     Route: 048
     Dates: start: 2002, end: 20200206
  17. INDAPAMIDE. [Concomitant]
     Active Substance: INDAPAMIDE
     Indication: HYPERTENSION
     Route: 048
     Dates: start: 2002, end: 20200206
  18. ACRENTINE [Concomitant]
     Indication: UPPER RESPIRATORY TRACT INFECTION
     Route: 048
     Dates: start: 20200316
  19. MUCODAIN [Concomitant]
     Indication: UPPER RESPIRATORY TRACT INFECTION
     Route: 048
     Dates: start: 20200316
  20. OMEGA 3 ACID ETHYL ESTERS [Concomitant]
     Active Substance: OMEGA-3-ACID ETHYL ESTERS
     Route: 048
     Dates: start: 20200214
  21. TYLENOL [Concomitant]
     Active Substance: ACETAMINOPHEN
     Route: 048
     Dates: start: 20200131, end: 20200206
  22. BENIDIPINE HCL [Concomitant]
     Indication: HYPERTENSION
     Route: 048
     Dates: start: 2002, end: 20200206
  23. FENOFIBRIC ACID. [Concomitant]
     Active Substance: FENOFIBRIC ACID
     Indication: HYPERCHOLESTEROLAEMIA
     Route: 048
     Dates: start: 2002, end: 20200206
  24. FENOFIBRIC ACID. [Concomitant]
     Active Substance: FENOFIBRIC ACID
     Route: 048
     Dates: start: 20200214
  25. IRBESARTAN. [Concomitant]
     Active Substance: IRBESARTAN
     Indication: HYPERTENSION
     Route: 048
     Dates: start: 201804, end: 20200206
  26. ELIQUIS [Concomitant]
     Active Substance: APIXABAN
     Route: 048
     Dates: start: 20200214
  27. GLIATAMINE [Concomitant]
     Dosage: 1 CAPSULE
     Route: 048
     Dates: start: 202001, end: 20200206
  28. TYLENOL [Concomitant]
     Active Substance: ACETAMINOPHEN
     Indication: PYREXIA
     Route: 048
     Dates: start: 20200130, end: 20200130
  29. LACTOWEL [Concomitant]
     Indication: DIARRHOEA
     Route: 048
     Dates: start: 20200209
  30. ELIQUIS [Concomitant]
     Active Substance: APIXABAN
     Indication: PULMONARY EMBOLISM
     Route: 048
     Dates: start: 201811, end: 20200206
  31. GLIATAMINE [Concomitant]
     Dosage: 1 CAPSULE
     Route: 048
     Dates: start: 20200214
  32. FLAGYL [Concomitant]
     Active Substance: METRONIDAZOLE\METRONIDAZOLE HYDROCHLORIDE
     Indication: INFECTION
     Route: 042
     Dates: start: 20200206, end: 20200212
  33. FEROBA YOU [Concomitant]
     Indication: ANAEMIA
     Route: 048
     Dates: start: 20200226, end: 20200229
  34. SCHDAFEN [Concomitant]
     Indication: UPPER RESPIRATORY TRACT INFECTION
     Route: 048
     Dates: start: 20200316
  35. NOVOMIX [Concomitant]
     Active Substance: INSULIN ASPART
     Indication: DIABETES MELLITUS
     Dosage: 48 UNIT
     Route: 058
     Dates: start: 201803, end: 20200116
  36. TYLENOL [Concomitant]
     Active Substance: ACETAMINOPHEN
     Indication: ANAPHYLACTIC REACTION
     Route: 048
     Dates: start: 20200123, end: 20200123
  37. OSARTAN [Concomitant]
     Active Substance: LOSARTAN POTASSIUM
     Indication: BLOOD CREATININE INCREASED
     Route: 048
     Dates: start: 20200207, end: 20200212
  38. UNIPENAK [Concomitant]
     Indication: PYREXIA
     Route: 030
     Dates: start: 20200207, end: 20200211
  39. ACETAMINOPHEN. [Concomitant]
     Active Substance: ACETAMINOPHEN
     Indication: PYREXIA
     Route: 048
     Dates: start: 20200208, end: 20200208
  40. FLASINYL [Concomitant]
     Indication: INFECTION
     Route: 048
     Dates: start: 20200212
  41. ATEZOLIZUMAB. [Suspect]
     Active Substance: ATEZOLIZUMAB
     Indication: TRANSITIONAL CELL CARCINOMA
     Dosage: DATE OF MOST RECENT DOSE OF ATEZOLIZUMAB PRIOR TO EVENT ONSET 23/JAN/2020
     Route: 042
     Dates: start: 20200123
  42. ALMATRI [Concomitant]
     Indication: GASTRITIS
     Route: 048
     Dates: start: 20200316
  43. NEBIVOLOL HCL [Concomitant]
     Active Substance: NEBIVOLOL
     Indication: HYPERTENSION
     Route: 048
     Dates: start: 2002, end: 20200206
  44. MORPHINE HCL [Concomitant]
     Active Substance: MORPHINE HYDROCHLORIDE
     Indication: PYREXIA
     Route: 042
     Dates: start: 20200206, end: 20200206
  45. MEIACT [Concomitant]
     Active Substance: CEFDITOREN PIVOXIL
     Indication: INFECTION
     Route: 048
     Dates: start: 20200212
  46. LEVOCETAN [Concomitant]
     Indication: UPPER RESPIRATORY TRACT INFECTION
     Route: 048
     Dates: start: 20200316

REACTIONS (1)
  - Myalgia [Recovered/Resolved]

NARRATIVE: CASE EVENT DATE: 20200203
